FAERS Safety Report 11695532 (Version 2)
Quarter: 2015Q4

REPORT INFORMATION
  Report Type: Spontaneous
  Country: US (occurrence: US)
  Receive Date: 20151104
  Receipt Date: 20151221
  Transmission Date: 20160304
  Serious: Yes (Hospitalization)
  Sender: FDA-Public Use
  Company Number: US-ROCHE-1655251

PATIENT
  Sex: Male
  Weight: 56.75 kg

DRUGS (1)
  1. ESBRIET [Suspect]
     Active Substance: PIRFENIDONE
     Indication: IDIOPATHIC PULMONARY FIBROSIS
     Dosage: 2403MG DAILY, 3 CAPS PO TID
     Route: 048
     Dates: start: 20151006

REACTIONS (1)
  - Intestinal obstruction [Unknown]
